FAERS Safety Report 9464887 (Version 1)
Quarter: 2013Q3

REPORT INFORMATION
  Report Type: Spontaneous
  Country: US (occurrence: US)
  Receive Date: 20130819
  Receipt Date: 20130819
  Transmission Date: 20140515
  Serious: No
  Sender: FDA-Public Use
  Company Number: US-BAYER-2013-099303

PATIENT
  Age: 86 Year
  Sex: Female
  Weight: 72.56 kg

DRUGS (6)
  1. ALEVE TABLET [Suspect]
     Dosage: 1 DF, PRN
     Route: 048
     Dates: start: 20130809, end: 20130811
  2. LESCOL XL [Concomitant]
     Dosage: UNK
  3. METHIMAZOLE [Concomitant]
     Dosage: UNK
  4. NEXIUM [Concomitant]
     Dosage: UNK
  5. CENTRUM SILVER [Concomitant]
     Dosage: UNK
  6. VITAMIN D [Concomitant]
     Dosage: UNK

REACTIONS (1)
  - Genital rash [Not Recovered/Not Resolved]
